FAERS Safety Report 5331948-1 (Version None)
Quarter: 2007Q2

REPORT INFORMATION
  Report Type: 
  Country: None (occurrence: None)
  Receive Date: 20070523
  Receipt Date: 20070517
  Transmission Date: 20071010
  Serious: Yes (Hospitalization)
  Sender: FDA-Public Use
  Company Number: US-JNJFOC-20070400814

PATIENT
  Sex: Female
  Weight: 72.58 kg

DRUGS (1)
  1. LEVAQUIN [Suspect]
     Indication: URINARY TRACT INFECTION
     Route: 048
     Dates: start: 20070301, end: 20070308

REACTIONS (4)
  - HEPATOTOXICITY [None]
  - LUPUS-LIKE SYNDROME [None]
  - RELAPSING FEVER [None]
  - RHABDOMYOLYSIS [None]
